FAERS Safety Report 6685945-4 (Version None)
Quarter: 2010Q2

REPORT INFORMATION
  Report Type: 
  Country: None (occurrence: None)
  Receive Date: 20100419
  Receipt Date: 20100406
  Transmission Date: 20101027
  Serious: Yes (Other)
  Sender: FDA-Public Use
  Company Number: PHHY2010IT23486

PATIENT
  Sex: Male

DRUGS (8)
  1. ZOMETA [Suspect]
     Indication: PROSTATE CANCER
     Dosage: UNK
     Dates: start: 20031223, end: 20071126
  2. MITOXANTRONE [Concomitant]
  3. TAXOTERE [Concomitant]
     Dosage: UNK
     Dates: start: 20060123, end: 20070123
  4. DECAPEPTYL [Concomitant]
     Dosage: UNK
     Dates: start: 19981224, end: 20040505
  5. ANDROCUR [Concomitant]
     Dosage: UNK
     Dates: start: 20020523, end: 20020821
  6. ZOLADEX [Concomitant]
     Dosage: UNK
     Dates: start: 20000621, end: 20000621
  7. CASODEX [Concomitant]
  8. FLUTAMIDE [Concomitant]

REACTIONS (2)
  - OSTEONECROSIS [None]
  - SURGERY [None]
